FAERS Safety Report 26020082 (Version 1)
Quarter: 2025Q4

REPORT INFORMATION
  Report Type: Spontaneous
  Country: EU (occurrence: EU)
  Receive Date: 20251110
  Receipt Date: 20251110
  Transmission Date: 20260118
  Serious: Yes (Other)
  Sender: MYLAN
  Company Number: EU-MYLANLABS-2025M1094298

PATIENT
  Age: 31 Year
  Sex: Male

DRUGS (68)
  1. MYCOPHENOLATE MOFETIL [Suspect]
     Active Substance: MYCOPHENOLATE MOFETIL
     Indication: Immune thrombocytopenia
     Dosage: 500 MILLIGRAM, QD
  2. MYCOPHENOLATE MOFETIL [Suspect]
     Active Substance: MYCOPHENOLATE MOFETIL
     Dosage: 500 MILLIGRAM, QD
     Route: 065
  3. MYCOPHENOLATE MOFETIL [Suspect]
     Active Substance: MYCOPHENOLATE MOFETIL
     Dosage: 500 MILLIGRAM, QD
     Route: 065
  4. MYCOPHENOLATE MOFETIL [Suspect]
     Active Substance: MYCOPHENOLATE MOFETIL
     Dosage: 500 MILLIGRAM, QD
  5. ELTROMBOPAG [Suspect]
     Active Substance: ELTROMBOPAG
     Indication: Immune thrombocytopenia
     Dosage: UNK
  6. ELTROMBOPAG [Suspect]
     Active Substance: ELTROMBOPAG
     Dosage: UNK
     Route: 065
  7. ELTROMBOPAG [Suspect]
     Active Substance: ELTROMBOPAG
     Dosage: UNK
     Route: 065
  8. ELTROMBOPAG [Suspect]
     Active Substance: ELTROMBOPAG
     Dosage: UNK
  9. ROMIPLOSTIM [Suspect]
     Active Substance: ROMIPLOSTIM
     Indication: Immune thrombocytopenia
     Dosage: 1 MICROGRAM (AT AN INITIAL DOSE 1 MICROGRAM PER KG, REGULARLY INCREASED TO 10 MICROGRAM PER KG),
  10. ROMIPLOSTIM [Suspect]
     Active Substance: ROMIPLOSTIM
     Dosage: 1 MICROGRAM (AT AN INITIAL DOSE 1 MICROGRAM PER KG, REGULARLY INCREASED TO 10 MICROGRAM PER KG),
  11. ROMIPLOSTIM [Suspect]
     Active Substance: ROMIPLOSTIM
     Dosage: 1 MICROGRAM (AT AN INITIAL DOSE 1 MICROGRAM PER KG, REGULARLY INCREASED TO 10 MICROGRAM PER KG),
     Route: 065
  12. ROMIPLOSTIM [Suspect]
     Active Substance: ROMIPLOSTIM
     Dosage: 1 MICROGRAM (AT AN INITIAL DOSE 1 MICROGRAM PER KG, REGULARLY INCREASED TO 10 MICROGRAM PER KG),
     Route: 065
  13. ROMIPLOSTIM [Suspect]
     Active Substance: ROMIPLOSTIM
     Dosage: 10 MICROGRAM (AT AN INITIAL DOSE 1 MICROGRAM PER KG, REGULARLY INCREASED TO 10 MICROGRAM PER KG),
  14. ROMIPLOSTIM [Suspect]
     Active Substance: ROMIPLOSTIM
     Dosage: 10 MICROGRAM (AT AN INITIAL DOSE 1 MICROGRAM PER KG, REGULARLY INCREASED TO 10 MICROGRAM PER KG),
  15. ROMIPLOSTIM [Suspect]
     Active Substance: ROMIPLOSTIM
     Dosage: 10 MICROGRAM (AT AN INITIAL DOSE 1 MICROGRAM PER KG, REGULARLY INCREASED TO 10 MICROGRAM PER KG),
     Route: 065
  16. ROMIPLOSTIM [Suspect]
     Active Substance: ROMIPLOSTIM
     Dosage: 10 MICROGRAM (AT AN INITIAL DOSE 1 MICROGRAM PER KG, REGULARLY INCREASED TO 10 MICROGRAM PER KG),
     Route: 065
  17. RITUXIMAB [Suspect]
     Active Substance: RITUXIMAB
     Indication: Immune thrombocytopenia
     Dosage: 1 DOSAGE FORM, QW (FOUR DOSES OF RITUXIMAB, ONE DOSE PER ONE WEEK)
  18. RITUXIMAB [Suspect]
     Active Substance: RITUXIMAB
     Dosage: 1 DOSAGE FORM, QW (FOUR DOSES OF RITUXIMAB, ONE DOSE PER ONE WEEK)
     Route: 065
  19. RITUXIMAB [Suspect]
     Active Substance: RITUXIMAB
     Dosage: 1 DOSAGE FORM, QW (FOUR DOSES OF RITUXIMAB, ONE DOSE PER ONE WEEK)
     Route: 065
  20. RITUXIMAB [Suspect]
     Active Substance: RITUXIMAB
     Dosage: 1 DOSAGE FORM, QW (FOUR DOSES OF RITUXIMAB, ONE DOSE PER ONE WEEK)
  21. AVATROMBOPAG [Suspect]
     Active Substance: AVATROMBOPAG
     Indication: Immune thrombocytopenia
     Dosage: 40 MILLIGRAM, QD
  22. AVATROMBOPAG [Suspect]
     Active Substance: AVATROMBOPAG
     Dosage: 40 MILLIGRAM, QD
  23. AVATROMBOPAG [Suspect]
     Active Substance: AVATROMBOPAG
     Dosage: 40 MILLIGRAM, QD
     Route: 065
  24. AVATROMBOPAG [Suspect]
     Active Substance: AVATROMBOPAG
     Dosage: 40 MILLIGRAM, QD
     Route: 065
  25. AVATROMBOPAG [Suspect]
     Active Substance: AVATROMBOPAG
     Dosage: 20 MILLIGRAM, QD
     Dates: start: 202302
  26. AVATROMBOPAG [Suspect]
     Active Substance: AVATROMBOPAG
     Dosage: 20 MILLIGRAM, QD
     Dates: start: 202302
  27. AVATROMBOPAG [Suspect]
     Active Substance: AVATROMBOPAG
     Dosage: 20 MILLIGRAM, QD
     Route: 065
     Dates: start: 202302
  28. AVATROMBOPAG [Suspect]
     Active Substance: AVATROMBOPAG
     Dosage: 20 MILLIGRAM, QD
     Route: 065
     Dates: start: 202302
  29. AVATROMBOPAG [Suspect]
     Active Substance: AVATROMBOPAG
     Dosage: 20 MILLIGRAM, QD
     Dates: start: 202309
  30. AVATROMBOPAG [Suspect]
     Active Substance: AVATROMBOPAG
     Dosage: 20 MILLIGRAM, QD
     Route: 065
     Dates: start: 202309
  31. AVATROMBOPAG [Suspect]
     Active Substance: AVATROMBOPAG
     Dosage: 20 MILLIGRAM, QD
     Dates: start: 202309
  32. AVATROMBOPAG [Suspect]
     Active Substance: AVATROMBOPAG
     Dosage: 20 MILLIGRAM, QD
     Route: 065
     Dates: start: 202309
  33. PREDNISONE [Suspect]
     Active Substance: PREDNISONE
     Indication: Immune thrombocytopenia
     Dosage: 20 MILLIGRAM, QD
  34. PREDNISONE [Suspect]
     Active Substance: PREDNISONE
     Dosage: 20 MILLIGRAM, QD
     Route: 065
  35. PREDNISONE [Suspect]
     Active Substance: PREDNISONE
     Dosage: 20 MILLIGRAM, QD
     Route: 065
  36. PREDNISONE [Suspect]
     Active Substance: PREDNISONE
     Dosage: 20 MILLIGRAM, QD
  37. CYCLOSPORINE [Suspect]
     Active Substance: CYCLOSPORINE
     Indication: Immune thrombocytopenia
     Dosage: 50 MILLIGRAM, QD
  38. CYCLOSPORINE [Suspect]
     Active Substance: CYCLOSPORINE
     Dosage: 50 MILLIGRAM, QD
     Route: 065
  39. CYCLOSPORINE [Suspect]
     Active Substance: CYCLOSPORINE
     Dosage: 50 MILLIGRAM, QD
     Route: 065
  40. CYCLOSPORINE [Suspect]
     Active Substance: CYCLOSPORINE
     Dosage: 50 MILLIGRAM, QD
  41. AZATHIOPRINE [Suspect]
     Active Substance: AZATHIOPRINE
     Indication: Immune thrombocytopenia
     Dosage: 100 MILLIGRAM, QD
  42. AZATHIOPRINE [Suspect]
     Active Substance: AZATHIOPRINE
     Dosage: 100 MILLIGRAM, QD
     Route: 065
  43. AZATHIOPRINE [Suspect]
     Active Substance: AZATHIOPRINE
     Dosage: 100 MILLIGRAM, QD
     Route: 065
  44. AZATHIOPRINE [Suspect]
     Active Substance: AZATHIOPRINE
     Dosage: 100 MILLIGRAM, QD
  45. CYCLOPHOSPHAMIDE [Suspect]
     Active Substance: CYCLOPHOSPHAMIDE
     Indication: Immune thrombocytopenia
     Dosage: UNK
  46. CYCLOPHOSPHAMIDE [Suspect]
     Active Substance: CYCLOPHOSPHAMIDE
     Dosage: UNK
     Route: 065
  47. CYCLOPHOSPHAMIDE [Suspect]
     Active Substance: CYCLOPHOSPHAMIDE
     Dosage: UNK
     Route: 065
  48. CYCLOPHOSPHAMIDE [Suspect]
     Active Substance: CYCLOPHOSPHAMIDE
     Dosage: UNK
  49. VINCRISTINE [Suspect]
     Active Substance: VINCRISTINE
     Indication: Immune thrombocytopenia
     Dosage: UNK
  50. VINCRISTINE [Suspect]
     Active Substance: VINCRISTINE
     Dosage: UNK
     Route: 065
  51. VINCRISTINE [Suspect]
     Active Substance: VINCRISTINE
     Dosage: UNK
     Route: 065
  52. VINCRISTINE [Suspect]
     Active Substance: VINCRISTINE
     Dosage: UNK
  53. DANAZOL [Suspect]
     Active Substance: DANAZOL
     Indication: Immune thrombocytopenia
     Dosage: UNK
  54. DANAZOL [Suspect]
     Active Substance: DANAZOL
     Dosage: UNK
     Route: 065
  55. DANAZOL [Suspect]
     Active Substance: DANAZOL
     Dosage: UNK
     Route: 065
  56. DANAZOL [Suspect]
     Active Substance: DANAZOL
     Dosage: UNK
  57. FOSTAMATINIB [Suspect]
     Active Substance: FOSTAMATINIB
     Indication: Immune thrombocytopenia
     Dosage: 200 MILLIGRAM, QD (INITIALLY AT A DOSE OF 200 MG/ DAY WITH A SUBSEQUENT INCREASE TO 300 MG/DAY)
  58. FOSTAMATINIB [Suspect]
     Active Substance: FOSTAMATINIB
     Dosage: 200 MILLIGRAM, QD (INITIALLY AT A DOSE OF 200 MG/ DAY WITH A SUBSEQUENT INCREASE TO 300 MG/DAY)
  59. FOSTAMATINIB [Suspect]
     Active Substance: FOSTAMATINIB
     Dosage: 200 MILLIGRAM, QD (INITIALLY AT A DOSE OF 200 MG/ DAY WITH A SUBSEQUENT INCREASE TO 300 MG/DAY)
     Route: 065
  60. FOSTAMATINIB [Suspect]
     Active Substance: FOSTAMATINIB
     Dosage: 200 MILLIGRAM, QD (INITIALLY AT A DOSE OF 200 MG/ DAY WITH A SUBSEQUENT INCREASE TO 300 MG/DAY)
     Route: 065
  61. FOSTAMATINIB [Suspect]
     Active Substance: FOSTAMATINIB
     Dosage: 300 MILLIGRAM, QD (INITIALLY AT A DOSE OF 200 MG/ DAY WITH A SUBSEQUENT INCREASE TO 300 MG/DAY)
  62. FOSTAMATINIB [Suspect]
     Active Substance: FOSTAMATINIB
     Dosage: 300 MILLIGRAM, QD (INITIALLY AT A DOSE OF 200 MG/ DAY WITH A SUBSEQUENT INCREASE TO 300 MG/DAY)
  63. FOSTAMATINIB [Suspect]
     Active Substance: FOSTAMATINIB
     Dosage: 300 MILLIGRAM, QD (INITIALLY AT A DOSE OF 200 MG/ DAY WITH A SUBSEQUENT INCREASE TO 300 MG/DAY)
     Route: 065
  64. FOSTAMATINIB [Suspect]
     Active Substance: FOSTAMATINIB
     Dosage: 300 MILLIGRAM, QD (INITIALLY AT A DOSE OF 200 MG/ DAY WITH A SUBSEQUENT INCREASE TO 300 MG/DAY)
     Route: 065
  65. BETAMETHASONE\CLIOQUINOL\GENTAMICIN\TOLNAFTATE [Suspect]
     Active Substance: BETAMETHASONE\CLIOQUINOL\GENTAMICIN\TOLNAFTATE
     Indication: Immune thrombocytopenia
     Dosage: UNK
  66. BETAMETHASONE\CLIOQUINOL\GENTAMICIN\TOLNAFTATE [Suspect]
     Active Substance: BETAMETHASONE\CLIOQUINOL\GENTAMICIN\TOLNAFTATE
     Dosage: UNK
     Route: 065
  67. BETAMETHASONE\CLIOQUINOL\GENTAMICIN\TOLNAFTATE [Suspect]
     Active Substance: BETAMETHASONE\CLIOQUINOL\GENTAMICIN\TOLNAFTATE
     Dosage: UNK
     Route: 065
  68. BETAMETHASONE\CLIOQUINOL\GENTAMICIN\TOLNAFTATE [Suspect]
     Active Substance: BETAMETHASONE\CLIOQUINOL\GENTAMICIN\TOLNAFTATE
     Dosage: UNK

REACTIONS (2)
  - Drug ineffective [Unknown]
  - Product use in unapproved indication [Unknown]
